FAERS Safety Report 6975610-8 (Version None)
Quarter: 2010Q3

REPORT INFORMATION
  Report Type: 
  Country: None (occurrence: None)
  Receive Date: 20100910
  Receipt Date: 20090323
  Transmission Date: 20110219
  Serious: Yes (Life-Threatening)
  Sender: FDA-Public Use
  Company Number: US-WYE-H08689109

PATIENT
  Sex: Female

DRUGS (4)
  1. PRISTIQ [Suspect]
     Indication: MAJOR DEPRESSION
     Route: 048
  2. LIPITOR [Concomitant]
     Dosage: UNKNOWN
  3. BONIVA [Concomitant]
     Dosage: UNKNOWN
  4. AMBIEN [Suspect]
     Indication: INSOMNIA
     Dosage: UNKNOWN

REACTIONS (1)
  - CONVULSION [None]
